FAERS Safety Report 6670664-0 (Version None)
Quarter: 2010Q2

REPORT INFORMATION
  Report Type: 
  Country: None (occurrence: None)
  Receive Date: 20100407
  Receipt Date: 20100326
  Transmission Date: 20101027
  Serious: Yes (Other)
  Sender: FDA-Public Use
  Company Number: CA-JNJFOC-20100210691

PATIENT
  Sex: Female

DRUGS (10)
  1. SIMPONI [Suspect]
     Indication: RHEUMATOID ARTHRITIS
     Route: 058
  2. SIMPONI [Suspect]
     Route: 058
  3. SIMPONI [Suspect]
     Route: 058
  4. SIMPONI [Suspect]
     Indication: ANKYLOSING SPONDYLITIS
     Route: 058
  5. SIMPONI [Suspect]
     Route: 058
  6. SIMPONI [Suspect]
     Route: 058
  7. MULTI-VITAMINS [Concomitant]
  8. VITAMIN C [Concomitant]
  9. ANTIHISTAMINE NOS [Concomitant]
  10. PROBIOTIC [Concomitant]

REACTIONS (11)
  - ABDOMINAL PAIN [None]
  - BONE PAIN [None]
  - DIZZINESS [None]
  - FEELING COLD [None]
  - GAIT DISTURBANCE [None]
  - HOT FLUSH [None]
  - HYPERHIDROSIS [None]
  - LOSS OF CONSCIOUSNESS [None]
  - NAUSEA [None]
  - NIGHT SWEATS [None]
  - VOMITING [None]
